FAERS Safety Report 6538937-X (Version None)
Quarter: 2010Q1

REPORT INFORMATION
  Report Type: 
  Country: None (occurrence: None)
  Receive Date: 20100115
  Receipt Date: 20100111
  Transmission Date: 20100710
  Serious: Yes (Hospitalization)
  Sender: FDA-Public Use
  Company Number: CL-TEVA-220524ISR

PATIENT
  Age: 36 Year
  Sex: Female

DRUGS (1)
  1. METHYLDOPA [Suspect]
     Indication: ESSENTIAL HYPERTENSION

REACTIONS (3)
  - FOETAL GROWTH RETARDATION [None]
  - HEPATITIS ACUTE [None]
  - HYPERTENSIVE CRISIS [None]
